FAERS Safety Report 17006940 (Version 1)
Quarter: 2019Q4

REPORT INFORMATION
  Report Type: Spontaneous
  Country: US (occurrence: US)
  Receive Date: 20191106
  Receipt Date: 20191106
  Transmission Date: 20200122
  Serious: Yes (Other)
  Sender: FDA-Public Use
  Company Number: None

PATIENT
  Age: 70 Year
  Sex: Male

DRUGS (15)
  1. ENBREL [Suspect]
     Active Substance: ETANERCEPT
     Indication: PSORIATIC ARTHROPATHY
     Dosage: ?          OTHER FREQUENCY:QWK;?
     Route: 058
     Dates: start: 20151119
  2. LEVOCETIRIZI [Concomitant]
  3. VALSARTAN. [Concomitant]
     Active Substance: VALSARTAN
  4. ATORVASTATIN [Concomitant]
     Active Substance: ATORVASTATIN
  5. FUROSEMIDE. [Concomitant]
     Active Substance: FUROSEMIDE
  6. ASPIRIN. [Concomitant]
     Active Substance: ASPIRIN
  7. IRBESARTAN. [Concomitant]
     Active Substance: IRBESARTAN
  8. MONTELUKAST [Concomitant]
     Active Substance: MONTELUKAST SODIUM
  9. POT CL MICRO [Concomitant]
  10. SILDENAFIL. [Concomitant]
     Active Substance: SILDENAFIL
  11. EZETIMIBE. [Concomitant]
     Active Substance: EZETIMIBE
  12. ALLOPURINOL. [Concomitant]
     Active Substance: ALLOPURINOL
  13. MULTI-VITAMN [Concomitant]
  14. VITAMIN D3 [Concomitant]
     Active Substance: CHOLECALCIFEROL
  15. INDAPAMIDE. [Concomitant]
     Active Substance: INDAPAMIDE

REACTIONS (3)
  - Therapy cessation [None]
  - Surgery [None]
  - Psoriasis [None]

NARRATIVE: CASE EVENT DATE: 20191106
